FAERS Safety Report 5750970-4 (Version None)
Quarter: 2008Q2

REPORT INFORMATION
  Report Type: 
  Country: None (occurrence: None)
  Receive Date: 20080528
  Receipt Date: 20080522
  Transmission Date: 20081010
  Serious: Yes (Other)
  Sender: FDA-Public Use
  Company Number: US-ASTRAZENECA-2008UW10530

PATIENT
  Age: 90 Year
  Sex: Female

DRUGS (9)
  1. SEROQUEL [Suspect]
     Route: 048
  2. LAXATIVE [Concomitant]
  3. ARICEPT [Concomitant]
  4. LISINOPRIL [Concomitant]
     Route: 048
  5. ATENOLOL [Concomitant]
     Route: 048
  6. ZOCOR [Concomitant]
  7. CALCIUM CHLORIDE [Concomitant]
  8. GAS X CHEWABLE [Concomitant]
  9. RISPERIDONE [Concomitant]

REACTIONS (1)
  - INTESTINAL OBSTRUCTION [None]
